FAERS Safety Report 5736888-1 (Version None)
Quarter: 2008Q2

REPORT INFORMATION
  Report Type: 
  Country: None (occurrence: None)
  Receive Date: 20080508
  Receipt Date: 20080424
  Transmission Date: 20081010
  Serious: Yes (Hospitalization, Other)
  Sender: FDA-Public Use
  Company Number: POMP-1000111

PATIENT
  Age: 80 Year
  Sex: Male

DRUGS (5)
  1. MYOZYME [Suspect]
     Indication: GLYCOGEN STORAGE DISEASE TYPE II
     Dosage: 1200 MG, INTRAVENOUS
     Route: 042
     Dates: start: 20071106, end: 20080325
  2. TICLOPIDINE (TICLOPIDINE) TABLET [Suspect]
     Dosage: ORAL
     Route: 048
  3. RAMIPRIL [Suspect]
     Dosage: ORAL
     Route: 048
  4. AVODART [Suspect]
     Dosage: 0.5 MG
  5. EFFEXOR [Suspect]
     Dosage: 75 MG, ORAL
     Route: 048

REACTIONS (8)
  - ASCITES [None]
  - GENERAL PHYSICAL HEALTH DETERIORATION [None]
  - GLYCOGEN STORAGE DISEASE TYPE II [None]
  - HERPES ZOSTER [None]
  - METASTASES TO PERITONEUM [None]
  - NEOPLASM MALIGNANT [None]
  - PLEURAL EFFUSION [None]
  - RESPIRATORY DISORDER [None]
